FAERS Safety Report 5195079-6 (Version None)
Quarter: 2006Q4

REPORT INFORMATION
  Report Type: 
  Country: None (occurrence: None)
  Receive Date: 20061229
  Receipt Date: 20061222
  Transmission Date: 20070319
  Serious: Yes (Life-Threatening, Hospitalization)
  Sender: FDA-Public Use
  Company Number: JP-JNJFOC-20061203517

PATIENT
  Sex: Female

DRUGS (14)
  1. RISPERDAL [Suspect]
     Route: 048
  2. RISPERDAL [Suspect]
     Route: 048
  3. RISPERDAL [Suspect]
     Route: 048
  4. RISPERDAL [Suspect]
     Indication: SCHIZOPHRENIA
     Route: 048
  5. SEROQUEL [Suspect]
     Route: 048
  6. SEROQUEL [Suspect]
     Route: 048
  7. SEROQUEL [Suspect]
     Route: 048
  8. SEROQUEL [Suspect]
     Indication: SCHIZOPHRENIA
     Route: 048
  9. VEGETAMIN-B [Suspect]
     Route: 048
  10. VEGETAMIN-B [Suspect]
     Indication: SCHIZOPHRENIA
     Route: 048
  11. BROTIZOLAM [Concomitant]
     Indication: SCHIZOPHRENIA
     Route: 048
  12. LORAZEPAM [Concomitant]
     Indication: SCHIZOPHRENIA
     Route: 048
  13. TETRAMIDE [Concomitant]
     Indication: SCHIZOPHRENIA
     Route: 047
  14. VEGETAMIN-A [Concomitant]
     Indication: SCHIZOPHRENIA
     Route: 048

REACTIONS (2)
  - ANURIA [None]
  - RHABDOMYOLYSIS [None]
